FAERS Safety Report 10028433 (Version 4)
Quarter: 2014Q2

REPORT INFORMATION
  Report Type: Spontaneous
  Country: US (occurrence: None)
  Receive Date: 20140320
  Receipt Date: 20140520
  Transmission Date: 20141212
  Serious: Yes (Hospitalization, Other)
  Sender: FDA-Public Use
  Company Number: AEGR000349

PATIENT
  Age: 74 Year
  Sex: Female
  Weight: 56.7 kg

DRUGS (12)
  1. JUXTAPID [Suspect]
     Indication: TYPE IIA HYPERLIPIDAEMIA
     Route: 048
     Dates: start: 201310, end: 2013
  2. ATORVASTATIN (ATORVASTATIN) [Concomitant]
  3. ZETIA (EZETIMIBE) [Concomitant]
  4. ALLOPURINOL (ALLOPURINOL) [Concomitant]
  5. VITAMIN D (COLECALCIFEROL) [Concomitant]
  6. DILTIAZEM CD (DILTIAZEM HYDROCHLORIDE) [Concomitant]
  7. MINOXIDIL (MINOXIDIL) [Concomitant]
  8. PAROXETINE HCL (PAROXETINE HYDROCHLORIDE) [Concomitant]
  9. TRAZODONE HCL (TRAZODONE HYDROCHLORIDE) [Concomitant]
  10. TORSEMIDE (TORASEMIDE) [Concomitant]
  11. SPIRONOLACTONE (SPIRONOLACTONE) [Concomitant]
  12. RANEXA (RANOLAZINE) [Concomitant]

REACTIONS (14)
  - Dehydration [None]
  - Pneumonia [None]
  - Decreased appetite [None]
  - Diarrhoea [None]
  - Gastrointestinal disorder [None]
  - Liver function test abnormal [None]
  - Blood alkaline phosphatase increased [None]
  - Abdominal discomfort [None]
  - Brain natriuretic peptide increased [None]
  - Drug intolerance [None]
  - Decreased appetite [None]
  - Off label use [None]
  - Treatment noncompliance [None]
  - Weight decreased [None]
